FAERS Safety Report 5636863-1 (Version None)
Quarter: 2008Q1

REPORT INFORMATION
  Report Type: 
  Country: None (occurrence: None)
  Receive Date: 20080225
  Receipt Date: 20080214
  Transmission Date: 20080703
  Serious: No
  Sender: FDA-Public Use
  Company Number: US-JNJFOC-20080203911

PATIENT
  Age: 46 Year
  Sex: Female
  Weight: 95.26 kg

DRUGS (3)
  1. INVEGA [Suspect]
     Indication: SCHIZOAFFECTIVE DISORDER
     Route: 048
  2. VITAMINS [Concomitant]
     Route: 048
  3. ABILIFY [Concomitant]
     Indication: SCHIZOAFFECTIVE DISORDER
     Route: 048

REACTIONS (5)
  - ANXIETY [None]
  - DEPERSONALISATION [None]
  - HEADACHE [None]
  - RESTLESSNESS [None]
  - SENSORY DISTURBANCE [None]
